FAERS Safety Report 5502953-7 (Version None)
Quarter: 2007Q4

REPORT INFORMATION
  Report Type: 
  Country: None (occurrence: None)
  Receive Date: 20071031
  Receipt Date: 20071029
  Transmission Date: 20080405
  Serious: Yes (Hospitalization, Other)
  Sender: FDA-Public Use
  Company Number: B0493073A

PATIENT
  Age: 45 Year
  Sex: Male
  Weight: 60 kg

DRUGS (7)
  1. ABACAVIR SULFATE [Suspect]
     Indication: HIV INFECTION
     Dosage: 600MG PER DAY
     Route: 048
     Dates: end: 20070927
  2. ZIDOVUDINE [Concomitant]
     Indication: HIV INFECTION
     Dosage: 500MG PER DAY
     Route: 048
     Dates: start: 20070911
  3. TENOFOVIR [Concomitant]
     Indication: HIV INFECTION
     Dosage: 245MG PER DAY
     Route: 048
     Dates: start: 20070911
  4. RIFAMPICIN [Concomitant]
     Indication: TUBERCULOSIS
     Dosage: 600MG PER DAY
     Route: 048
     Dates: start: 20070802, end: 20070911
  5. ISONIAZID [Concomitant]
     Indication: TUBERCULOSIS
     Dosage: 300MG PER DAY
     Route: 048
     Dates: start: 20070802
  6. PYRAZINAMIDE [Concomitant]
     Indication: TUBERCULOSIS
     Dosage: 2G PER DAY
     Route: 048
     Dates: start: 20070802
  7. ETHAMBUTOL HCL [Concomitant]
     Indication: TUBERCULOSIS
     Dosage: 800MG PER DAY
     Dates: start: 20070802

REACTIONS (2)
  - C-REACTIVE PROTEIN INCREASED [None]
  - PYREXIA [None]
